FAERS Safety Report 23653691 (Version 1)
Quarter: 2024Q1

REPORT INFORMATION
  Report Type: Spontaneous
  Country: US (occurrence: None)
  Receive Date: 20240319
  Receipt Date: 20240319
  Transmission Date: 20240409
  Serious: Yes (Hospitalization)
  Sender: FDA-Public Use
  Company Number: None

PATIENT
  Sex: Female

DRUGS (11)
  1. MYCOPHENOLIC ACID [Suspect]
     Active Substance: MYCOPHENOLIC ACID
     Indication: Renal transplant
     Route: 048
     Dates: start: 20230816
  2. AMLODIPINE [Concomitant]
  3. CELLCEPT [Concomitant]
  4. MEPRON SUS [Concomitant]
  5. OXYCODONE TAB [Concomitant]
  6. PEPCID [Concomitant]
  7. PREDNISONE TAB [Concomitant]
  8. PROGRAF [Concomitant]
  9. TACROLIMUS [Concomitant]
  10. TACROLIMUS A [Concomitant]
  11. VALCYTE TAB 450 MG [Concomitant]

REACTIONS (1)
  - Hospitalisation [None]
